FAERS Safety Report 5332231-0 (Version None)
Quarter: 2007Q2

REPORT INFORMATION
  Report Type: 
  Country: None (occurrence: None)
  Receive Date: 20070306
  Receipt Date: 20060502
  Transmission Date: 20071010
  Serious: Yes (Hospitalization)
  Sender: FDA-Public Use
  Company Number: A03200602822

PATIENT
  Age: 81 Year
  Sex: Female
  Weight: 61.22 kg

DRUGS (13)
  1. PLAVIX [Suspect]
     Indication: STENT PLACEMENT
     Dosage: 75 MG QD - ORAL
     Route: 048
     Dates: start: 20050601
  2. METOPROLOL SUCCINATE [Concomitant]
  3. ACETYLSALICYLIC ACID SRT [Concomitant]
  4. CENTRUM WITH LYCOPENE [Concomitant]
  5. COENZYME Q10 [Concomitant]
  6. ASCORBIC ACID [Concomitant]
  7. GLUCOSAMINE CHONDROITIN WITH CALCIUM [Concomitant]
  8. CHOLESTACARE [Concomitant]
  9. FIBERMUCIL [Concomitant]
  10. VITAMIN B-12 [Concomitant]
  11. BILBERRY [Concomitant]
  12. SOY LETHICIN [Concomitant]
  13. POTASSIUM CHLORIDE [Concomitant]

REACTIONS (2)
  - BLOOD SODIUM DECREASED [None]
  - LOSS OF CONSCIOUSNESS [None]
